FAERS Safety Report 7464695-0 (Version None)
Quarter: 2011Q2

REPORT INFORMATION
  Report Type: 
  Country: None (occurrence: None)
  Receive Date: 20110509
  Receipt Date: 20110322
  Transmission Date: 20111010
  Serious: Yes (Hospitalization, Other)
  Sender: FDA-Public Use
  Company Number: US-BAYER-201041133NA

PATIENT
  Sex: Female
  Weight: 95.238 kg

DRUGS (26)
  1. SINGULAIR [Concomitant]
     Indication: ASTHMA
     Dosage: UNK
     Dates: start: 20020101
  2. ALBUTEROL [Concomitant]
     Indication: ASTHMA
     Dosage: UNK
     Dates: start: 20020101
  3. ALBUTEROL [Concomitant]
     Indication: MULTIPLE ALLERGIES
  4. MOTRIN [Concomitant]
     Indication: PRODUCT USED FOR UNKNOWN INDICATION
  5. NASONEX [Concomitant]
     Indication: ASTHMA
     Dosage: UNK
     Dates: start: 20020101
  6. ORTHO TRI-CYCLEN LO [Concomitant]
     Dosage: UNK
     Dates: start: 20040419
  7. YAZ [Suspect]
     Dosage: UNK
     Dates: start: 20061001, end: 20091001
  8. YASMIN [Suspect]
     Dosage: UNK
     Dates: start: 20061001, end: 20091201
  9. SPRINTEC [Concomitant]
     Indication: PRODUCT USED FOR UNKNOWN INDICATION
     Dosage: UNK
     Dates: start: 20100128
  10. NASONEX [Concomitant]
     Indication: MULTIPLE ALLERGIES
  11. FEXOFENADINE [Concomitant]
     Indication: ASTHMA
     Dosage: UNK
     Dates: start: 20020101
  12. FEXOFENADINE [Concomitant]
     Indication: MULTIPLE ALLERGIES
  13. AZITHROMYCIN [Concomitant]
     Indication: PRODUCT USED FOR UNKNOWN INDICATION
     Dosage: UNK
     Dates: start: 20080101
  14. ESTROSTEP FE [Concomitant]
     Dosage: UNK
     Dates: start: 20031013
  15. SPRINTEC [Concomitant]
     Dosage: UNK
     Dates: start: 20100817
  16. SPRINTEC [Concomitant]
     Dosage: UNK
     Dates: start: 20110114
  17. YAZ [Suspect]
     Indication: ACNE
     Dosage: UNK
     Dates: start: 20040101
  18. YASMIN [Suspect]
     Dosage: UNK
     Dates: start: 20050901, end: 20060301
  19. EFFEXOR XR [Concomitant]
     Indication: PRODUCT USED FOR UNKNOWN INDICATION
     Dosage: UNK
     Dates: start: 20070101
  20. SINGULAIR [Concomitant]
     Indication: MULTIPLE ALLERGIES
  21. FEMCON FE [Concomitant]
     Indication: PRODUCT USED FOR UNKNOWN INDICATION
     Dosage: UNK
     Dates: start: 20050112
  22. SPRINTEC [Concomitant]
     Dosage: UNK
     Dates: start: 20100719
  23. YAZ [Suspect]
     Dosage: UNK
     Dates: start: 20050901, end: 20060301
  24. YASMIN [Suspect]
     Indication: ACNE
     Dosage: UNK
     Dates: start: 20040101
  25. ESTROSTEP FE [Concomitant]
     Indication: PRODUCT USED FOR UNKNOWN INDICATION
     Dosage: UNK
     Dates: start: 20030926
  26. ORTHO TRI-CYCLEN LO [Concomitant]
     Indication: PRODUCT USED FOR UNKNOWN INDICATION
     Dosage: UNK
     Dates: start: 20040315

REACTIONS (3)
  - CHOLELITHIASIS [None]
  - GALLBLADDER DISORDER [None]
  - INJURY [None]
